FAERS Safety Report 16162452 (Version 2)
Quarter: 2019Q2

REPORT INFORMATION
  Report Type: Spontaneous
  Country: TH (occurrence: TH)
  Receive Date: 20190405
  Receipt Date: 20190426
  Transmission Date: 20190711
  Serious: Yes (Other)
  Sender: FDA-Public Use
  Company Number: TH-BAYER-2019-062670

PATIENT
  Age: 38 Year
  Sex: Male

DRUGS (6)
  1. ENZALUTAMIDE [Concomitant]
     Active Substance: ENZALUTAMIDE
     Indication: HORMONE-REFRACTORY PROSTATE CANCER
     Dosage: 160 MG DAILY
     Dates: start: 20170529, end: 20171119
  2. STIVARGA [Suspect]
     Active Substance: REGORAFENIB
     Indication: HEPATOCELLULAR CARCINOMA
     Dosage: 80 MG DAY
     Dates: start: 20161011, end: 2016
  3. STIVARGA [Suspect]
     Active Substance: REGORAFENIB
     Indication: HEPATOCELLULAR CARCINOMA
     Dosage: 80 MG DAY
     Dates: start: 20171212, end: 20180206
  4. STIVARGA [Suspect]
     Active Substance: REGORAFENIB
     Indication: HEPATOCELLULAR CARCINOMA
     Dosage: 160 MG DAY
     Dates: start: 20160816, end: 2016
  5. STIVARGA [Suspect]
     Active Substance: REGORAFENIB
     Indication: HEPATOCELLULAR CARCINOMA
     Dosage: 120 MG DAY
     Dates: start: 20160913, end: 2016
  6. ZOMETA [Concomitant]
     Active Substance: ZOLEDRONIC ACID
     Indication: HORMONE-REFRACTORY PROSTATE CANCER
     Dosage: 4 MG IV EVERY 4 WEEKS
     Dates: start: 20170724

REACTIONS (2)
  - Metastases to lung [None]
  - Palmar-plantar erythrodysaesthesia syndrome [None]
